FAERS Safety Report 11654754 (Version 1)
Quarter: 2015Q4

REPORT INFORMATION
  Report Type: Spontaneous
  Country: US (occurrence: None)
  Receive Date: 20151022
  Receipt Date: 20151022
  Transmission Date: 20160304
  Serious: Yes (Other)
  Sender: FDA-Public Use
  Company Number: None

PATIENT
  Age: 3 Month
  Sex: Female
  Weight: 3.6 kg

DRUGS (18)
  1. DEXMEDETOMIDINE. [Suspect]
     Active Substance: DEXMEDETOMIDINE
     Indication: SEDATION
     Route: 042
     Dates: start: 20151015, end: 20151015
  2. CALCIUM GLUCONATE. [Concomitant]
     Active Substance: CALCIUM GLUCONATE
  3. RANITIDINE [Concomitant]
     Active Substance: RANITIDINE\RANITIDINE HYDROCHLORIDE
  4. BUPIVACAINE/EPI [Concomitant]
  5. IPRATROPIUM [Concomitant]
     Active Substance: IPRATROPIUM
  6. POLY VI SOL WITH IRON [Concomitant]
  7. ROCURONIUM [Concomitant]
     Active Substance: ROCURONIUM BROMIDE
  8. ATROPINE. [Concomitant]
     Active Substance: ATROPINE
  9. BUDESONIDE NEBULIZER SOLUTION [Concomitant]
  10. CEFAZOLIN [Concomitant]
     Active Substance: CEFAZOLIN
  11. SODIUM CHLORIDE. [Concomitant]
     Active Substance: SODIUM CHLORIDE
  12. SPIRONOLACTONE. [Concomitant]
     Active Substance: SPIRONOLACTONE
  13. FUROSEMIDE. [Concomitant]
     Active Substance: FUROSEMIDE
  14. DEXTROSE. [Concomitant]
     Active Substance: DEXTROSE
  15. ACETAMINOPHEN. [Concomitant]
     Active Substance: ACETAMINOPHEN
  16. FENTANYL. [Concomitant]
     Active Substance: FENTANYL
  17. POTASSIUM CHLORIDE. [Concomitant]
     Active Substance: POTASSIUM CHLORIDE
  18. BACITRACIN. [Concomitant]
     Active Substance: BACITRACIN

REACTIONS (4)
  - Agitation [None]
  - Tachypnoea [None]
  - Breath sounds abnormal [None]
  - Urticaria [None]

NARRATIVE: CASE EVENT DATE: 20151015
